FAERS Safety Report 15393104 (Version 1)
Quarter: 2018Q3

REPORT INFORMATION
  Report Type: Spontaneous
  Country: FR (occurrence: FR)
  Receive Date: 20180917
  Receipt Date: 20180917
  Transmission Date: 20181010
  Serious: Yes (Death, Hospitalization)
  Sender: FDA-Public Use
  Company Number: FR-PFIZER INC-2018368057

PATIENT
  Age: 66 Year
  Sex: Male
  Weight: 79 kg

DRUGS (2)
  1. OXALIPLATIN. [Suspect]
     Active Substance: OXALIPLATIN
     Indication: COLON CANCER
     Dosage: 104 MG/M2, ON 21 DAYS
     Route: 042
     Dates: start: 20171115, end: 20180703
  2. TOMUDEX [Suspect]
     Active Substance: RALTITREXED
     Indication: COLON CANCER
     Dosage: 2 MG/M2, ON 21 DAYS
     Route: 042
     Dates: start: 20171115, end: 20180703

REACTIONS (1)
  - Pulmonary fibrosis [Fatal]

NARRATIVE: CASE EVENT DATE: 20180131
